FAERS Safety Report 17282267 (Version 1)
Quarter: 2020Q1

REPORT INFORMATION
  Report Type: Spontaneous
  Country: US (occurrence: US)
  Receive Date: 20200117
  Receipt Date: 20200117
  Transmission Date: 20200409
  Serious: No
  Sender: FDA-Public Use
  Company Number: US-JNJFOC-20200103435

PATIENT
  Sex: Female
  Weight: 90.8 kg

DRUGS (1)
  1. PEPCID AC [Suspect]
     Active Substance: FAMOTIDINE
     Indication: DYSPEPSIA
     Dosage: 1 OR 2 SOMETIME ONCE SOMETIME TWICE
     Route: 048

REACTIONS (1)
  - Drug ineffective [Unknown]
